FAERS Safety Report 17008868 (Version 1)
Quarter: 2019Q4

REPORT INFORMATION
  Report Type: Report from Study
  Country: US (occurrence: US)
  Receive Date: 20191108
  Receipt Date: 20191108
  Transmission Date: 20200122
  Serious: Yes (Other)
  Sender: FDA-Public Use
  Company Number: US-BAYER-2019-199503

PATIENT

DRUGS (2)
  1. ACETAMINOPHEN. [Suspect]
     Active Substance: ACETAMINOPHEN
  2. ALCOHOL. [Concomitant]
     Active Substance: ALCOHOL

REACTIONS (3)
  - Overdose [None]
  - Toxicity to various agents [None]
  - Acute hepatic failure [None]
